FAERS Safety Report 4283702-X (Version None)
Quarter: 2004Q1

REPORT INFORMATION
  Report Type: 
  Country: None (occurrence: None)
  Receive Date: 20040129
  Receipt Date: 20040129
  Transmission Date: 20041129
  Serious: Yes (Hospitalization)
  Sender: FDA-Public Use
  Company Number: None

PATIENT
  Age: 83 Year
  Sex: Male
  Weight: 79.6516 kg

DRUGS (9)
  1. AMIODARONE HCL [Suspect]
     Indication: ARRHYTHMIA
     Dosage: 200 MG PO QD
     Route: 048
     Dates: end: 20031012
  2. LASIX [Concomitant]
  3. ASPIRIN [Concomitant]
  4. COUMADIN [Concomitant]
  5. INSULIN [Concomitant]
  6. ELAVIL [Concomitant]
  7. ACTOS [Concomitant]
  8. ALEVE [Concomitant]
  9. SENOKOT [Concomitant]

REACTIONS (6)
  - ASTHENIA [None]
  - DRUG TOXICITY [None]
  - DYSPNOEA [None]
  - FATIGUE [None]
  - OEDEMA PERIPHERAL [None]
  - PULMONARY FIBROSIS [None]
